FAERS Safety Report 7922641-7 (Version None)
Quarter: 2011Q4

REPORT INFORMATION
  Report Type: 
  Country: None (occurrence: None)
  Receive Date: 20111117
  Receipt Date: 20110627
  Transmission Date: 20120403
  Serious: No
  Sender: FDA-Public Use
  Company Number: US-ALLERGAN-1104238US

PATIENT
  Age: 62 Year
  Sex: Male

DRUGS (1)
  1. COMBIGAN [Suspect]
     Indication: GLAUCOMA
     Dosage: UNK
     Route: 047
     Dates: start: 20110401

REACTIONS (3)
  - EYE PRURITUS [None]
  - HYPERSENSITIVITY [None]
  - OCULAR HYPERAEMIA [None]
